FAERS Safety Report 13655216 (Version 5)
Quarter: 2017Q4

REPORT INFORMATION
  Report Type: Report from Study
  Country: JP (occurrence: JP)
  Receive Date: 20170615
  Receipt Date: 20171012
  Transmission Date: 20180320
  Serious: Yes (Hospitalization)
  Sender: FDA-Public Use
  Company Number: JP-ROCHE-1946470

PATIENT
  Age: 59 Year
  Sex: Male
  Weight: 79.1 kg

DRUGS (4)
  1. OBINUTUZUMAB. [Suspect]
     Active Substance: OBINUTUZUMAB
     Indication: NON-HODGKIN^S LYMPHOMA UNSPECIFIED HISTOLOGY INDOLENT
     Dosage: 1000 MG IV ON DAYS 1, 8 AND 15 OF CYCLE 1 AND ON DAY 1 OF CYCLES 2 TO 8 (28-DAY CYCLES), FOLLOWED BY
     Route: 042
     Dates: start: 20130904
  2. BENDAMUSTINE [Suspect]
     Active Substance: BENDAMUSTINE
     Indication: NON-HODGKIN^S LYMPHOMA UNSPECIFIED HISTOLOGY INDOLENT
     Dosage: ON 23/JAN/2014, THE PATIENT RECEIVED LAST DOSE (174 MG) OF BENDAMUSTINE PRIOR TO SERIOUS ADVERSE EVE
     Route: 042
     Dates: start: 20130905
  3. OBINUTUZUMAB. [Suspect]
     Active Substance: OBINUTUZUMAB
     Dosage: MAINTENANCE PERIOD
     Route: 042
  4. TAFLUPROST [Concomitant]
     Active Substance: TAFLUPROST
     Route: 065
     Dates: start: 2011

REACTIONS (1)
  - Laryngeal squamous cell carcinoma [Recovered/Resolved]

NARRATIVE: CASE EVENT DATE: 20170526
